FAERS Safety Report 20300379 (Version 1)
Quarter: 2022Q1

REPORT INFORMATION
  Report Type: Spontaneous
  Country: None (occurrence: GB)
  Receive Date: 20220105
  Receipt Date: 20220105
  Transmission Date: 20220423
  Serious: Yes (Other)
  Sender: FDA-Public Use
  Company Number: GB-B.Braun Medical Inc.-2123639

PATIENT
  Age: 51 Year
  Sex: Male

DRUGS (1)
  1. SODIUM CHLORIDE [Suspect]
     Active Substance: SODIUM CHLORIDE

REACTIONS (8)
  - Hypersensitivity [Unknown]
  - Abdominal distension [Unknown]
  - Barrett^s oesophagus [Unknown]
  - Vitamin B12 deficiency [Unknown]
  - Regurgitation [Unknown]
  - Dyspepsia [Unknown]
  - Neck pain [Unknown]
  - Eructation [Unknown]
